FAERS Safety Report 24775965 (Version 1)
Quarter: 2024Q4

REPORT INFORMATION
  Report Type: Spontaneous
  Country: IT (occurrence: IT)
  Receive Date: 20241226
  Receipt Date: 20241226
  Transmission Date: 20250115
  Serious: Yes (Other)
  Sender: CELLTRION
  Company Number: None

PATIENT

DRUGS (1)
  1. YUFLYMA [Suspect]
     Active Substance: ADALIMUMAB-AATY
     Indication: Psoriatic arthropathy
     Dosage: EVERY 15 DAYS, SOLUTION FOR INJECTION IN PRE-FILLED PEN, SUBCUTANEOUS, (BATCH AND LOT TESTED AND FOU
     Route: 058
     Dates: start: 20240227, end: 20240615

REACTIONS (2)
  - Erectile dysfunction [Not Recovered/Not Resolved]
  - Intentional product use issue [Unknown]

NARRATIVE: CASE EVENT DATE: 20240301
